FAERS Safety Report 12633045 (Version 2)
Quarter: 2016Q3

REPORT INFORMATION
  Report Type: Spontaneous
  Country: US (occurrence: US)
  Receive Date: 20160808
  Receipt Date: 20160808
  Transmission Date: 20161109
  Serious: No
  Sender: FDA-Public Use
  Company Number: US-BEH-2016058263

PATIENT
  Sex: Female
  Weight: 11 kg

DRUGS (10)
  1. ACETAMINOPHEN. [Concomitant]
     Active Substance: ACETAMINOPHEN
  2. MURPIROCIN [Concomitant]
  3. LMX [Concomitant]
     Active Substance: LIDOCAINE
  4. EPIPEN [Concomitant]
     Active Substance: EPINEPHRINE
  5. VITAMIN D [Concomitant]
     Active Substance: CHOLECALCIFEROL
  6. DIPHENHYDRAMINE. [Concomitant]
     Active Substance: DIPHENHYDRAMINE
  7. PROBIOTIC [Concomitant]
     Active Substance: PROBIOTICS NOS
  8. HIZENTRA [Suspect]
     Active Substance: HUMAN IMMUNOGLOBULIN G
     Indication: HYPOGLOBULINAEMIA
     Route: 058
  9. GENOTROPIN [Concomitant]
     Active Substance: SOMATROPIN
  10. KEFLEX [Concomitant]
     Active Substance: CEPHALEXIN

REACTIONS (1)
  - Sinusitis [Unknown]
